FAERS Safety Report 9482077 (Version 1)
Quarter: 2013Q3

REPORT INFORMATION
  Report Type: Spontaneous
  Country: US (occurrence: US)
  Receive Date: 20130828
  Receipt Date: 20130828
  Transmission Date: 20140515
  Serious: Yes (Hospitalization)
  Sender: FDA-Public Use
  Company Number: US-ROCHE-1263806

PATIENT
  Sex: Female

DRUGS (4)
  1. HERCEPTIN [Suspect]
     Indication: BREAST CANCER
     Route: 042
     Dates: start: 20130503
  2. HERCEPTIN [Suspect]
     Route: 042
     Dates: start: 20130605
  3. HERCEPTIN [Suspect]
     Route: 042
     Dates: start: 20130802
  4. TAXOL [Suspect]
     Indication: BREAST CANCER
     Route: 042

REACTIONS (6)
  - Ulcer haemorrhage [Unknown]
  - Blood pressure decreased [Recovered/Resolved]
  - Alopecia [Recovering/Resolving]
  - Headache [Not Recovered/Not Resolved]
  - Malaise [Recovering/Resolving]
  - Burning sensation [Not Recovered/Not Resolved]
